FAERS Safety Report 4944275-9 (Version None)
Quarter: 2006Q1

REPORT INFORMATION
  Report Type: 
  Country: None (occurrence: None)
  Receive Date: 20060315
  Receipt Date: 20060302
  Transmission Date: 20060701
  Serious: Yes (Congenital Anomaly)
  Sender: FDA-Public Use
  Company Number: US-GLAXOSMITHKLINE-A0596624A

PATIENT

DRUGS (2)
  1. COMBIVIR [Suspect]
     Indication: HIV INFECTION
  2. KALETRA [Suspect]
     Indication: HIV INFECTION

REACTIONS (2)
  - DRUG EXPOSURE DURING PREGNANCY [None]
  - FOETAL CARDIAC DISORDER [None]
